FAERS Safety Report 7680654-7 (Version None)
Quarter: 2011Q3

REPORT INFORMATION
  Report Type: 
  Country: None (occurrence: None)
  Receive Date: 20110812
  Receipt Date: 20110808
  Transmission Date: 20111222
  Serious: Yes (Life-Threatening, Hospitalization, Other)
  Sender: FDA-Public Use
  Company Number: MX-SANOFI-AVENTIS-2011SA050921

PATIENT
  Age: 57 Year
  Sex: Male

DRUGS (9)
  1. LANTUS [Suspect]
     Indication: TYPE 2 DIABETES MELLITUS
     Route: 058
     Dates: start: 20070101, end: 20110701
  2. LANTUS [Suspect]
     Route: 058
     Dates: start: 20110701
  3. ALL OTHER THERAPEUTIC PRODUCTS [Concomitant]
     Dates: start: 20100101, end: 20100101
  4. MICARDIS [Concomitant]
     Route: 048
  5. NPH INSULIN [Concomitant]
     Indication: TYPE 2 DIABETES MELLITUS
     Route: 058
     Dates: start: 20010101, end: 20070101
  6. SHORANT [Suspect]
     Indication: TYPE 2 DIABETES MELLITUS
     Route: 058
     Dates: start: 20070101, end: 20110701
  7. AMLODIPINE [Concomitant]
     Route: 048
  8. GLYBURIDE [Concomitant]
     Indication: TYPE 2 DIABETES MELLITUS
     Route: 048
     Dates: start: 19990101, end: 20030101
  9. RAPID INSULIN [Concomitant]
     Indication: TYPE 2 DIABETES MELLITUS
     Route: 058
     Dates: start: 20030101, end: 20070101

REACTIONS (5)
  - WEIGHT INCREASED [None]
  - GENERALISED OEDEMA [None]
  - ACUTE PULMONARY OEDEMA [None]
  - RENAL FAILURE CHRONIC [None]
  - HYPERGLYCAEMIA [None]
